FAERS Safety Report 9054010 (Version 1)
Quarter: 2013Q1

REPORT INFORMATION
  Report Type: Spontaneous
  Country: FR (occurrence: FR)
  Receive Date: 20130208
  Receipt Date: 20130208
  Transmission Date: 20140127
  Serious: Yes (Life-Threatening)
  Sender: FDA-Public Use
  Company Number: FR-PFIZER INC-2013052159

PATIENT
  Age: 56 Year
  Sex: Female

DRUGS (3)
  1. ARTOTEC [Suspect]
     Dosage: 1 DF, SINGLE
     Route: 048
     Dates: start: 20120709, end: 20120709
  2. EFFERALGAN [Suspect]
     Dosage: 1 G, SINGLE
     Route: 048
     Dates: start: 20120709, end: 20120709
  3. INEXIUM [Suspect]
     Dosage: 1 DF, SINGLE
     Route: 048
     Dates: start: 20120709, end: 20120709

REACTIONS (1)
  - Anaphylactic shock [Recovered/Resolved]
